FAERS Safety Report 4622247-1 (Version None)
Quarter: 2005Q1

REPORT INFORMATION
  Report Type: 
  Country: None (occurrence: None)
  Receive Date: 20050323
  Receipt Date: 20050323
  Transmission Date: 20050727
  Serious: Yes (Other)
  Sender: FDA-Public Use
  Company Number: None

PATIENT
  Age: 18 Year
  Sex: Male
  Weight: 99.3377 kg

DRUGS (3)
  1. ACETAMINOPHEN [Suspect]
     Indication: ARTHRALGIA
     Dosage: 500 MG Q4H PRN ORAL
     Route: 048
     Dates: start: 20050111, end: 20050302
  2. BENEFIX [Concomitant]
  3. ..... [Concomitant]

REACTIONS (1)
  - SOMNOLENCE [None]
